FAERS Safety Report 16884974 (Version 1)
Quarter: 2019Q4

REPORT INFORMATION
  Report Type: Spontaneous
  Country: US (occurrence: US)
  Receive Date: 20191004
  Receipt Date: 20191004
  Transmission Date: 20200122
  Serious: Yes (Other)
  Sender: FDA-Public Use
  Company Number: US-PFIZER INC-2019382283

PATIENT
  Age: 82 Year
  Sex: Female
  Weight: 62.13 kg

DRUGS (4)
  1. NORPACE CR [Suspect]
     Active Substance: DISOPYRAMIDE PHOSPHATE
     Dosage: 100 MG, 3X/DAY
  2. NORPACE CR [Suspect]
     Active Substance: DISOPYRAMIDE PHOSPHATE
     Dosage: 200 MG, 2X/DAY
  3. NORPACE [Suspect]
     Active Substance: DISOPYRAMIDE PHOSPHATE
     Indication: ATRIAL FIBRILLATION
     Dosage: 300 MG, 3X/DAY(3 IN THE MORNING, 3 AT 2PM AND 3 AT 9PM)
  4. NORPACE CR [Suspect]
     Active Substance: DISOPYRAMIDE PHOSPHATE
     Indication: ATRIAL FIBRILLATION
     Dosage: 100 MG, UNK

REACTIONS (5)
  - Off label use [Unknown]
  - Product name confusion [Unknown]
  - Product dispensing error [Unknown]
  - Product dose omission [Unknown]
  - Atrial fibrillation [Unknown]
